FAERS Safety Report 8932904 (Version 1)
Quarter: 2012Q4

REPORT INFORMATION
  Report Type: Spontaneous
  Country: DK (occurrence: None)
  Receive Date: 20121119
  Receipt Date: 20121119
  Transmission Date: 20130627
  Serious: Yes (Other)
  Sender: FDA-Public Use
  Company Number: 2012MA013422

PATIENT
  Age: 48 Year
  Sex: Female

DRUGS (3)
  1. RAMIPRIL [Suspect]
     Dates: start: 20121001
  2. VENLAFAXINE HYDROCHLORIDE TABLETS [Concomitant]
  3. ECOMEPRAZOLE [Concomitant]

REACTIONS (2)
  - Oral pain [None]
  - Gingival pain [None]
